FAERS Safety Report 9159389 (Version 1)
Quarter: 2013Q1

REPORT INFORMATION
  Report Type: Spontaneous
  Country: GB (occurrence: GB)
  Receive Date: 20130313
  Receipt Date: 20130313
  Transmission Date: 20140127
  Serious: Yes (Disabling, Congenital Anomaly)
  Sender: FDA-Public Use
  Company Number: PHFR2013GB001523

PATIENT
  Age: 51 Year
  Sex: Female

DRUGS (4)
  1. LETROZOLE [Suspect]
     Dosage: 2.5 MG, DAILY
     Route: 048
     Dates: start: 20121217
  2. HERCEPTIN [Suspect]
     Indication: BREAST CANCER
     Dosage: EVERY THREE WEEKS
     Route: 042
     Dates: start: 20121217
  3. CHLORPHENIRAMINE [Concomitant]
     Dosage: UNK UKN, UNK
     Route: 048
     Dates: start: 201301
  4. PREDNISONE [Concomitant]
     Dosage: UNK UKN, UNK

REACTIONS (2)
  - Congenital anomaly [Unknown]
  - Arthralgia [Unknown]
